FAERS Safety Report 5492829-6 (Version None)
Quarter: 2007Q4

REPORT INFORMATION
  Report Type: 
  Country: None (occurrence: None)
  Receive Date: 20071023
  Receipt Date: 20071012
  Transmission Date: 20080405
  Serious: Yes (Other)
  Sender: FDA-Public Use
  Company Number: JP-SP-2007-02928

PATIENT
  Age: 67 Year
  Sex: Male

DRUGS (4)
  1. IMMUCYST [Suspect]
     Indication: URETERIC CANCER
     Route: 043
     Dates: start: 20070515, end: 20070605
  2. TAMSULOSIN HYDROCHLORIDE [Concomitant]
     Route: 048
     Dates: start: 20070425
  3. EVIPROSTAT [Concomitant]
     Dates: start: 20070425
  4. LOXOPROFEN SODIUM [Concomitant]
     Dates: start: 20070424

REACTIONS (3)
  - BOVINE TUBERCULOSIS [None]
  - PULMONARY GRANULOMA [None]
  - PYREXIA [None]
